FAERS Safety Report 19169613 (Version 1)
Quarter: 2021Q2

REPORT INFORMATION
  Report Type: Spontaneous
  Country: US (occurrence: US)
  Receive Date: 20210422
  Receipt Date: 20210422
  Transmission Date: 20210717
  Serious: Yes (Death)
  Sender: FDA-Public Use
  Company Number: US-ROCHE-2816191

PATIENT
  Sex: Female
  Weight: 85.26 kg

DRUGS (6)
  1. LUNESTA [Concomitant]
     Active Substance: ESZOPICLONE
     Route: 048
     Dates: start: 20141224, end: 20150224
  2. PERJETA [Suspect]
     Active Substance: PERTUZUMAB
     Indication: NEOPLASM MALIGNANT
     Route: 042
     Dates: start: 20170111
  3. DEPAKOTE [Concomitant]
     Active Substance: DIVALPROEX SODIUM
     Route: 048
     Dates: start: 20141224, end: 20150224
  4. RISPERDAL [Concomitant]
     Active Substance: RISPERIDONE
     Route: 048
     Dates: start: 20141224
  5. BENADRYL [Concomitant]
     Active Substance: DIPHENHYDRAMINE HYDROCHLORIDE
     Dosage: EXTERNAL
     Dates: start: 20141224
  6. LISINOPRIL AND HYDROCHLOROTHIAZIDE [Concomitant]
     Active Substance: HYDROCHLOROTHIAZIDE\LISINOPRIL
     Route: 048
     Dates: start: 20141224

REACTIONS (1)
  - Death [Fatal]
